FAERS Safety Report 23219371 (Version 1)
Quarter: 2023Q4

REPORT INFORMATION
  Report Type: Spontaneous
  Country: CN (occurrence: CN)
  Receive Date: 20231122
  Receipt Date: 20231122
  Transmission Date: 20240110
  Serious: Yes (Other)
  Sender: FDA-Public Use
  Company Number: CN-009507513-2311CHN007334

PATIENT
  Age: 67 Year
  Sex: Female

DRUGS (3)
  1. KEYTRUDA [Suspect]
     Active Substance: PEMBROLIZUMAB
     Indication: Invasive lobular breast carcinoma
     Dosage: 200 MG, ONCE (ALSO REPORTED EVERY 21 DAYS (Q21D))
     Route: 041
     Dates: start: 20230907, end: 20230907
  2. DOCETAXEL [Suspect]
     Active Substance: DOCETAXEL\DOCETAXEL ANHYDROUS
     Indication: Invasive lobular breast carcinoma
     Dosage: 45 MG, ONCE (ALSO REPORTED AS ON DAY 1 AND 8)
     Route: 041
     Dates: start: 20230907, end: 20230907
  3. CARBOPLATIN [Suspect]
     Active Substance: CARBOPLATIN
     Indication: Invasive lobular breast carcinoma
     Dosage: 150 MG, ONCE (ALSO REPORTED AS FROM DAY 1 TO DAY 3)
     Route: 041
     Dates: start: 20230907, end: 20230907

REACTIONS (1)
  - Myelosuppression [Recovering/Resolving]

NARRATIVE: CASE EVENT DATE: 20230908
